FAERS Safety Report 5592417-7 (Version None)
Quarter: 2007Q4

REPORT INFORMATION
  Report Type: 
  Country: None (occurrence: None)
  Receive Date: 20071217
  Receipt Date: 20070916
  Transmission Date: 20080405
  Serious: No
  Sender: FDA-Public Use
  Company Number: BDI-010197

PATIENT
  Age: 35 Year
  Sex: Male
  Weight: 159 kg

DRUGS (4)
  1. MULTIHANCE [Suspect]
     Indication: NUCLEAR MAGNETIC RESONANCE IMAGING BRAIN
     Dosage: 10 ML ONCE IV
     Route: 042
     Dates: start: 20070914, end: 20070914
  2. MULTIHANCE [Suspect]
     Indication: VISUAL DISTURBANCE
     Dosage: 10 ML ONCE IV
     Route: 042
     Dates: start: 20070914, end: 20070914
  3. MULTIHANCE [Suspect]
     Indication: NUCLEAR MAGNETIC RESONANCE IMAGING BRAIN
     Dosage: 10 ML ONCE IV
     Route: 042
     Dates: start: 20070914, end: 20070914
  4. MULTIHANCE [Suspect]
     Indication: VISUAL DISTURBANCE
     Dosage: 10 ML ONCE IV
     Route: 042
     Dates: start: 20070914, end: 20070914

REACTIONS (1)
  - VOMITING [None]
